FAERS Safety Report 16393207 (Version 1)
Quarter: 2019Q2

REPORT INFORMATION
  Report Type: Report from Study
  Country: DE (occurrence: DE)
  Receive Date: 20190605
  Receipt Date: 20190605
  Transmission Date: 20190711
  Serious: Yes (Other)
  Sender: FDA-Public Use
  Company Number: DE-TEVA-2019-DE-1057486

PATIENT
  Age: 66 Year
  Sex: Male
  Weight: 52 kg

DRUGS (28)
  1. FLUOROURACIL. [Suspect]
     Active Substance: FLUOROURACIL
     Dosage: 650 MILLIGRAM
     Route: 042
  2. FLUOROURACIL. [Suspect]
     Active Substance: FLUOROURACIL
     Dosage: 3800 MILLIGRAM
     Route: 042
     Dates: start: 20180517
  3. VECTIBIX [Suspect]
     Active Substance: PANITUMUMAB
     Indication: COLORECTAL CANCER METASTATIC
     Dosage: 360 MILLIGRAM
     Route: 042
     Dates: start: 20171027
  4. FOLINIC ACID [Suspect]
     Active Substance: LEUCOVORIN
     Dosage: 250 MILLIGRAM
     Route: 065
  5. IRINOTECAN [Suspect]
     Active Substance: IRINOTECAN
     Dosage: 250 MILLIGRAM
     Route: 065
  6. IRINOTECAN [Suspect]
     Active Substance: IRINOTECAN
     Dosage: 3800 MILLIGRAM
     Route: 065
  7. VECTIBIX [Suspect]
     Active Substance: PANITUMUMAB
     Dosage: 350 MILLIGRAM
     Route: 042
  8. CALCIUMCARBONAT [Concomitant]
     Indication: MINERAL SUPPLEMENTATION
     Dosage: 1 UNK, BID
     Route: 048
  9. PLIAZON [Concomitant]
     Indication: ACNE
     Dosage: UNK, AS NECESSARY
     Route: 061
  10. MINOCYCLINE [Concomitant]
     Active Substance: MINOCYCLINE\MINOCYCLINE HYDROCHLORIDE
     Indication: PROPHYLACTIC CHEMOTHERAPY
     Dosage: 50 MILLIGRAM, QD
     Route: 048
  11. CONCOR [Concomitant]
     Active Substance: BISOPROLOL FUMARATE
     Indication: BLOOD PRESSURE MEASUREMENT
     Dosage: 2.5 MILLIGRAM, QD
     Route: 048
     Dates: start: 20180114
  12. PALLADON [Concomitant]
     Active Substance: HYDROMORPHONE
     Indication: PAIN
     Dosage: 2.6 MILLIGRAM, AS NECESSARY
     Route: 048
  13. PANTOPRAZOL [Concomitant]
     Active Substance: PANTOPRAZOLE SODIUM
     Indication: ABDOMINAL PAIN UPPER
     Dosage: 40 MILLIGRAM, QD
     Route: 048
  14. FLUOROURACIL. [Suspect]
     Active Substance: FLUOROURACIL
     Dosage: 3600 MILLIGRAM
     Route: 042
  15. FLUOROURACIL. [Suspect]
     Active Substance: FLUOROURACIL
     Dosage: 3800 MILLIGRAM
     Route: 042
  16. NYSTATIN. [Concomitant]
     Active Substance: NYSTATIN
     Indication: FUNGAL INFECTION
     Dosage: UNK, AS NECESSARY
     Route: 061
  17. ACETYLSALICYLIC ACID [Concomitant]
     Active Substance: ASPIRIN
     Indication: HAEMODILUTION
     Dosage: 100 MILLIGRAM, QD
     Route: 048
  18. RAMIPRIL. [Concomitant]
     Active Substance: RAMIPRIL
     Indication: BLOOD PRESSURE MEASUREMENT
     Dosage: 25 MILLIGRAM, QD
     Route: 048
  19. FLUOROURACIL. [Suspect]
     Active Substance: FLUOROURACIL
     Indication: COLORECTAL CANCER METASTATIC
     Dosage: 3600 MILLIGRAM
     Route: 042
  20. VECTIBIX [Suspect]
     Active Substance: PANITUMUMAB
     Dosage: 260 MILLIGRAM
     Route: 042
     Dates: start: 20180921
  21. FOLINIC ACID [Suspect]
     Active Substance: LEUCOVORIN
     Dosage: 650 MILLIGRAM
     Route: 065
  22. FOLINIC ACID [Suspect]
     Active Substance: LEUCOVORIN
     Dosage: 650 MILLIGRAM
     Route: 065
  23. IRINOTECAN [Suspect]
     Active Substance: IRINOTECAN
     Indication: COLORECTAL CANCER METASTATIC
     Dosage: 250 MILLIGRAM
     Route: 065
     Dates: start: 20171013
  24. ARIXTRA [Concomitant]
     Active Substance: FONDAPARINUX SODIUM
     Indication: THROMBOSIS
     Dosage: 7.5 MILLIGRAM, QD
     Route: 058
     Dates: start: 20180114
  25. VITAMIN D3 [Concomitant]
     Active Substance: CHOLECALCIFEROL
     Indication: VITAMIN SUPPLEMENTATION
     Dosage: 1 UNK, BID
     Route: 048
  26. LOPERAMID [Concomitant]
     Active Substance: LOPERAMIDE
     Indication: DIARRHOEA
     Dosage: 2 MILLIGRAM, AS NECESSARY
     Route: 048
     Dates: start: 20171211
  27. NOVAMINSULFON [Concomitant]
     Active Substance: METAMIZOLE
     Indication: PAIN
     Dosage: 40 UNK, QD
     Route: 048
     Dates: start: 20171110
  28. FLUOROURACIL. [Suspect]
     Active Substance: FLUOROURACIL
     Dosage: 650 MILLIGRAM
     Route: 040
     Dates: start: 20171013

REACTIONS (1)
  - Dermatitis acneiform [Not Recovered/Not Resolved]

NARRATIVE: CASE EVENT DATE: 20180831
